FAERS Safety Report 23712430 (Version 1)
Quarter: 2024Q2

REPORT INFORMATION
  Report Type: Spontaneous
  Country: ES (occurrence: ES)
  Receive Date: 20240405
  Receipt Date: 20240405
  Transmission Date: 20240716
  Serious: Yes (Other)
  Sender: FDA-Public Use
  Company Number: None

PATIENT

DRUGS (5)
  1. XCOPRI [Suspect]
     Active Substance: CENOBAMATE
     Indication: Epilepsy
     Dosage: 50 MG (50 MG,1 IN 1 D)
     Route: 048
     Dates: start: 20221229, end: 20230103
  2. XCOPRI [Suspect]
     Active Substance: CENOBAMATE
     Dosage: 12.5 MG (12.5 MG,1 IN 1 D)
     Route: 048
     Dates: start: 20221214, end: 20221228
  3. DEPAKINE                           /00228501/ [Concomitant]
     Indication: Epilepsy
     Dosage: UNKN (1000 MG,12 HR)
     Route: 048
  4. TEGRETOL [Concomitant]
     Active Substance: CARBAMAZEPINE
     Indication: Epilepsy
     Dosage: 200-200-400 (800MG,1 D)
     Route: 048
  5. CANNABIDIOL [Concomitant]
     Active Substance: CANNABIDIOL
     Indication: Epilepsy
     Dosage: 1100 MG (550 MG,1 IN 12 HR)
     Route: 048

REACTIONS (4)
  - Off label use [Recovered/Resolved]
  - Agitation [Recovered/Resolved]
  - Condition aggravated [Recovered/Resolved]
  - Suicidal ideation [Recovered/Resolved]

NARRATIVE: CASE EVENT DATE: 20230103
